FAERS Safety Report 4423255-6 (Version None)
Quarter: 2004Q3

REPORT INFORMATION
  Report Type: 
  Country: None (occurrence: None)
  Receive Date: 20040805
  Receipt Date: 20040727
  Transmission Date: 20050211
  Serious: Yes (Disabling)
  Sender: FDA-Public Use
  Company Number: LBID00204002545

PATIENT
  Sex: Female

DRUGS (2)
  1. LITHOBID [Suspect]
     Indication: ILL-DEFINED DISORDER
     Dosage: 600 MG DAILY PO,  650 MG DAILY PO
     Route: 048
  2. LAMICTAL [Suspect]
     Indication: ILL-DEFINED DISORDER
     Dosage: 225 MG DAILY PO  , 250 MG DAILY PO
     Route: 048

REACTIONS (4)
  - ABDOMINAL DISCOMFORT [None]
  - DRUG INTERACTION [None]
  - THERAPEUTIC AGENT TOXICITY [None]
  - TREMOR [None]
